FAERS Safety Report 11074218 (Version 1)
Quarter: 2015Q2

REPORT INFORMATION
  Report Type: Spontaneous
  Country: US (occurrence: None)
  Receive Date: 20150427
  Receipt Date: 20150427
  Transmission Date: 20150821
  Serious: Yes (Other)
  Sender: FDA-Public Use
  Company Number: CIO15024959

PATIENT
  Age: 21 Year
  Sex: Male

DRUGS (1)
  1. CREST 3D WHITE VIVID RADIANT MINT [Suspect]
     Active Substance: SODIUM FLUORIDE

REACTIONS (2)
  - Toothache [None]
  - Tooth loss [None]
